FAERS Safety Report 5553841-1 (Version None)
Quarter: 2007Q4

REPORT INFORMATION
  Report Type: 
  Country: None (occurrence: None)
  Receive Date: 20071213
  Receipt Date: 20071203
  Transmission Date: 20080405
  Serious: Yes (Hospitalization)
  Sender: FDA-Public Use
  Company Number: IT-ROCHE-534509

PATIENT
  Age: 81 Year
  Sex: Female

DRUGS (6)
  1. TICLID [Suspect]
     Indication: DRUG USE FOR UNKNOWN INDICATION
     Route: 048
     Dates: start: 20070501, end: 20070831
  2. CONTRAMAL [Concomitant]
     Indication: HEADACHE
     Dosage: DOSE REPORTED AS: 10 GTT ONCE
     Route: 048
     Dates: start: 20070831, end: 20070831
  3. UNSPECIFIED MEDICATION [Concomitant]
     Dosage: DRUG REPORTED AS HIZAAR.
  4. NORVASC [Concomitant]
     Route: 048
  5. LASIX [Concomitant]
     Route: 048
  6. NEXIUM [Concomitant]
     Dosage: INDICATION REPORTED AS: PROPHYLAXIS AGAINST DRUG INDUCED ULCERS.
     Route: 048

REACTIONS (2)
  - ANAEMIA [None]
  - HAEMATEMESIS [None]
